FAERS Safety Report 7260254-3 (Version None)
Quarter: 2011Q1

REPORT INFORMATION
  Report Type: 
  Country: None (occurrence: None)
  Receive Date: 20110130
  Receipt Date: 20101001
  Transmission Date: 20110831
  Serious: No
  Sender: FDA-Public Use
  Company Number: US-ABBOTT-10P-163-0669966-00

PATIENT
  Sex: Male
  Weight: 65.83 kg

DRUGS (3)
  1. PENTASA [Concomitant]
     Indication: CROHN'S DISEASE
  2. COUMADIN [Concomitant]
     Indication: PROTEIN C DEFICIENCY
  3. HUMIRA [Suspect]
     Indication: CROHN'S DISEASE
     Route: 058
     Dates: start: 20100501

REACTIONS (3)
  - OEDEMA PERIPHERAL [None]
  - DEVICE MALFUNCTION [None]
  - CROHN'S DISEASE [None]
